FAERS Safety Report 5195217-5 (Version None)
Quarter: 2006Q4

REPORT INFORMATION
  Report Type: 
  Country: None (occurrence: None)
  Receive Date: 20061229
  Receipt Date: 20061018
  Transmission Date: 20070319
  Serious: Yes (Hospitalization, Disabling)
  Sender: FDA-Public Use
  Company Number: JP-PFIZER INC-2006129918

PATIENT
  Sex: Female
  Weight: 33 kg

DRUGS (13)
  1. SULPERAZON [Suspect]
     Indication: PNEUMONIA
     Route: 042
     Dates: start: 20061008, end: 20061014
  2. SULPERAZON [Suspect]
     Indication: PYREXIA
  3. UNASYN [Suspect]
     Indication: PNEUMONIA
     Route: 042
     Dates: start: 20061006, end: 20061008
  4. UNASYN [Suspect]
     Indication: PYREXIA
  5. CARBENIN [Suspect]
     Indication: PNEUMONIA
     Route: 042
     Dates: start: 20061015, end: 20061022
  6. CARBENIN [Suspect]
     Indication: PYREXIA
  7. GASTER [Suspect]
     Indication: PROPHYLAXIS
     Route: 042
     Dates: start: 20061007, end: 20061015
  8. CEFAZOLIN [Suspect]
     Dosage: DAILY DOSE:.5GRAM
     Route: 042
     Dates: start: 20061006, end: 20061006
  9. ROCEPHIN [Concomitant]
     Route: 042
  10. PANTOL [Concomitant]
     Dates: start: 20061007, end: 20061014
  11. DORMICUM FOR INJECTION [Concomitant]
     Dates: start: 20061006, end: 20061031
  12. FENTANEST [Concomitant]
     Route: 042
     Dates: start: 20061006, end: 20061031
  13. HANP [Concomitant]
     Route: 042
     Dates: start: 20061006, end: 20061015

REACTIONS (6)
  - ACUTE RESPIRATORY DISTRESS SYNDROME [None]
  - DRUG HYPERSENSITIVITY [None]
  - INTERSTITIAL LUNG DISEASE [None]
  - PULMONARY OEDEMA [None]
  - SPUTUM CULTURE POSITIVE [None]
  - STAPHYLOCOCCAL INFECTION [None]
